FAERS Safety Report 9556339 (Version 2)
Quarter: 2014Q1

REPORT INFORMATION
  Report Type: Spontaneous
  Country: US (occurrence: None)
  Receive Date: 20130906
  Receipt Date: 20131205
  Transmission Date: 20141002
  Serious: Yes (Other)
  Sender: FDA-Public Use
  Company Number: 163-POMAL-13061948

PATIENT
  Age: 65 Year
  Sex: Female
  Weight: 62.6 kg

DRUGS (8)
  1. POMALYST [Suspect]
     Indication: PLASMA CELL MYELOMA
     Dosage: 4 MG, 1 IN 1 D, PO TEMPORARILY INTERRUPTED
     Route: 048
     Dates: start: 20130515
  2. CENTRUM SILVER [Concomitant]
  3. CALTRATE 600 + D [Concomitant]
  4. SENOKOT (SENNA FRUIT) [Concomitant]
  5. AMLODIPINE BESYLATE [Concomitant]
  6. DEXAMETHASONE (DEXAMETHASONE) [Concomitant]
  7. OMEPRAZOLE (OMEPRAZOLE) [Concomitant]
  8. FISH OIL (FISH OIL) [Concomitant]

REACTIONS (6)
  - Chromaturia [None]
  - Erythema [None]
  - Local swelling [None]
  - Haematuria [None]
  - Pollakiuria [None]
  - Drug dose omission [None]
